FAERS Safety Report 6630649-7 (Version None)
Quarter: 2010Q1

REPORT INFORMATION
  Report Type: 
  Country: None (occurrence: None)
  Receive Date: 20100311
  Receipt Date: 20090717
  Transmission Date: 20100710
  Serious: Yes (Other)
  Sender: FDA-Public Use
  Company Number: US-BIOGENIDEC-2009BI016088

PATIENT
  Age: 34 Year
  Sex: Female

DRUGS (6)
  1. AVONEX [Suspect]
     Indication: MULTIPLE SCLEROSIS
     Route: 030
     Dates: start: 20060901, end: 20080501
  2. AVONEX [Suspect]
     Route: 030
     Dates: start: 20081101, end: 20090201
  3. AVONEX [Suspect]
     Route: 030
     Dates: start: 20090201, end: 20090428
  4. AVONEX [Suspect]
     Route: 030
     Dates: end: 20090601
  5. PHENYTOIN [Concomitant]
  6. VITAMINS [Concomitant]

REACTIONS (1)
  - ABORTION SPONTANEOUS [None]
